FAERS Safety Report 23433266 (Version 1)
Quarter: 2024Q1

REPORT INFORMATION
  Report Type: Spontaneous
  Country: US (occurrence: None)
  Receive Date: 20240123
  Receipt Date: 20240123
  Transmission Date: 20240410
  Serious: Yes (Hospitalization)
  Sender: FDA-Public Use
  Company Number: None

PATIENT
  Sex: Female

DRUGS (2)
  1. AMBRISENTAN [Suspect]
     Active Substance: AMBRISENTAN
     Indication: Pulmonary arterial hypertension
     Dosage: 5MG ONCE DAILY PO
     Route: 048
     Dates: start: 202310
  2. ORENITRAM (MNTH 2 TITR) [Concomitant]

REACTIONS (2)
  - Migraine [None]
  - Pain [None]
